FAERS Safety Report 25343827 (Version 1)
Quarter: 2025Q2

REPORT INFORMATION
  Report Type: Spontaneous
  Country: US (occurrence: None)
  Receive Date: 20250521
  Receipt Date: 20250521
  Transmission Date: 20250716
  Serious: Yes (Other)
  Sender: FDA-CTU
  Company Number: None

PATIENT
  Age: 69 Year
  Sex: Female
  Weight: 40.95 kg

DRUGS (1)
  1. LENALIDOMIDE [Suspect]
     Active Substance: LENALIDOMIDE
     Indication: Plasma cell myeloma
     Dosage: FREQUENCY : DAILY;?
     Route: 048
     Dates: start: 20250331

REACTIONS (10)
  - Nausea [None]
  - Dysgeusia [None]
  - Fall [None]
  - Confusional state [None]
  - Balance disorder [None]
  - Blood pressure decreased [None]
  - Mental impairment [None]
  - Tremor [None]
  - Hypophagia [None]
  - Syncope [None]

NARRATIVE: CASE EVENT DATE: 20250521
